FAERS Safety Report 6057706-0 (Version None)
Quarter: 2009Q1

REPORT INFORMATION
  Report Type: 
  Country: None (occurrence: None)
  Receive Date: 20090129
  Receipt Date: 20090116
  Transmission Date: 20090719
  Serious: Yes (Hospitalization)
  Sender: FDA-Public Use
  Company Number: JP-ABBOTT-07P-087-0426077-00

PATIENT
  Age: 77 Year
  Sex: Male

DRUGS (14)
  1. LEUPROLIDE ACETATE [Suspect]
     Indication: PROSTATE CANCER STAGE II
     Route: 058
     Dates: start: 20060616
  2. LEUPROLIDE ACETATE [Suspect]
     Dates: start: 20060127, end: 20060519
  3. BLOPRESS [Concomitant]
     Indication: HYPERTENSION
     Route: 048
  4. ACTOS [Concomitant]
     Indication: DIABETES MELLITUS
     Route: 048
  5. ACTOS [Concomitant]
     Route: 048
  6. VOGLIBOSE [Concomitant]
     Indication: DIABETES MELLITUS
     Route: 048
  7. VOGLIBOSE [Concomitant]
     Route: 048
  8. CASODEX [Concomitant]
     Indication: PROSTATE CANCER STAGE II
     Route: 048
     Dates: end: 20070406
  9. ASPIRIN [Concomitant]
     Indication: MYOCARDIAL INFARCTION
     Route: 048
  10. AMLODIPINE [Concomitant]
     Indication: HYPERTENSION
     Route: 048
     Dates: end: 20070215
  11. EUGLUCON [Concomitant]
     Indication: DIABETES MELLITUS
     Route: 048
  12. EUGLUCON [Concomitant]
     Route: 048
     Dates: end: 20070410
  13. NORVASC [Concomitant]
     Indication: HYPERTENSION
     Route: 048
     Dates: start: 20070216
  14. DAONIL [Concomitant]
     Indication: DIABETES MELLITUS
     Route: 048
     Dates: start: 20070411

REACTIONS (3)
  - INJECTION SITE INDURATION [None]
  - NON-HODGKIN'S LYMPHOMA [None]
  - SWELLING FACE [None]
